FAERS Safety Report 10251444 (Version 1)
Quarter: 2014Q2

REPORT INFORMATION
  Report Type: Spontaneous
  Country: US (occurrence: US)
  Receive Date: 20140623
  Receipt Date: 20140623
  Transmission Date: 20141212
  Serious: Yes (Other)
  Sender: FDA-Public Use
  Company Number: US-UCBSA-2014002501

PATIENT
  Sex: Female
  Weight: 58.96 kg

DRUGS (2)
  1. KEPPRA [Suspect]
     Indication: EPILEPSY
     Dosage: 30000 G, ONCE DAILY (QD)
     Route: 048
  2. KEPPRA [Suspect]
     Indication: CONVULSION

REACTIONS (5)
  - Abortion spontaneous [Unknown]
  - Convulsion [Unknown]
  - Epilepsy [Unknown]
  - Overdose [Unknown]
  - Pregnancy [Unknown]
